FAERS Safety Report 20063576 (Version 2)
Quarter: 2021Q4

REPORT INFORMATION
  Report Type: Report from Study
  Country: CA (occurrence: CA)
  Receive Date: 20211112
  Receipt Date: 20211225
  Transmission Date: 20220303
  Serious: Yes (Other)
  Sender: FDA-Public Use
  Company Number: CA-AMGEN-CANSL2021173468

PATIENT
  Age: 77 Year
  Sex: Female

DRUGS (1)
  1. PROLIA [Suspect]
     Active Substance: DENOSUMAB
     Indication: Product used for unknown indication
     Dosage: Q6MO
     Route: 065
     Dates: start: 20140501

REACTIONS (4)
  - Exostosis [Unknown]
  - Post procedural infection [Unknown]
  - Tooth extraction [Unknown]
  - Dental operation [Unknown]

NARRATIVE: CASE EVENT DATE: 20211001
